FAERS Safety Report 22257040 (Version 3)
Quarter: 2023Q2

REPORT INFORMATION
  Report Type: Spontaneous
  Country: GB (occurrence: GB)
  Receive Date: 20230427
  Receipt Date: 20230603
  Transmission Date: 20230722
  Serious: Yes (Other)
  Sender: FDA-Public Use
  Company Number: GB-MHRA-ADR 27817666

PATIENT

DRUGS (2)
  1. CLOPIDOGREL [Suspect]
     Active Substance: CLOPIDOGREL BISULFATE
     Indication: Product used for unknown indication
     Dosage: UNK
     Route: 065
     Dates: start: 2021
  2. CLOPIDOGREL TORRENT [Concomitant]
     Indication: Product used for unknown indication
     Dosage: UNK, PHARMA
     Route: 065

REACTIONS (2)
  - Epistaxis [Recovered/Resolved]
  - Product substitution issue [Unknown]
